FAERS Safety Report 10749051 (Version 1)
Quarter: 2015Q1

REPORT INFORMATION
  Report Type: Spontaneous
  Country: US (occurrence: None)
  Receive Date: 20150128
  Receipt Date: 20150128
  Transmission Date: 20150721
  Serious: Yes (Disabling)
  Sender: FDA-Public Use
  Company Number: None

PATIENT
  Age: 25 Year
  Sex: Female
  Weight: 81.65 kg

DRUGS (1)
  1. ALBENZA [Suspect]
     Active Substance: ALBENDAZOLE
     Indication: INFECTION PARASITIC
     Dosage: 2 TABLETS TWICE A DAY
     Route: 048

REACTIONS (6)
  - Infection parasitic [None]
  - Product counterfeit [None]
  - Vomiting [None]
  - Product physical issue [None]
  - Condition aggravated [None]
  - Product taste abnormal [None]

NARRATIVE: CASE EVENT DATE: 20150101
